FAERS Safety Report 9054731 (Version 4)
Quarter: 2013Q2

REPORT INFORMATION
  Report Type: Spontaneous
  Country: BE (occurrence: BE)
  Receive Date: 20130208
  Receipt Date: 20130501
  Transmission Date: 20140414
  Serious: Yes (Hospitalization, Other)
  Sender: FDA-Public Use
  Company Number: PHHY2013BE011326

PATIENT
  Age: 60 Year
  Sex: Male

DRUGS (8)
  1. CERTICAN [Suspect]
     Indication: RENAL TRANSPLANT
     Dosage: 0.75 MG, BID
     Route: 048
     Dates: start: 20120330, end: 20130121
  2. MYFORTIC [Concomitant]
     Route: 048
  3. COVERAM [Concomitant]
     Dosage: 10 MG / 10 MG
  4. BISOPROLOL [Concomitant]
     Dosage: 5 MG, UNK
  5. ATORVASTATINE [Concomitant]
     Dosage: 40 MG, UNK
  6. ALLOPURINOL [Concomitant]
     Dosage: 300 MG, UNK
  7. D-CURE [Concomitant]
  8. CALCIUM CARBONATE [Concomitant]

REACTIONS (5)
  - Nephrotic syndrome [Recovering/Resolving]
  - Local swelling [Recovering/Resolving]
  - Blood creatinine increased [Recovering/Resolving]
  - Thrombotic microangiopathy [Recovering/Resolving]
  - Respiratory tract infection [Recovering/Resolving]
